FAERS Safety Report 9750192 (Version 2)
Quarter: 2014Q1

REPORT INFORMATION
  Report Type: Spontaneous
  Country: US (occurrence: US)
  Receive Date: 20131212
  Receipt Date: 20140225
  Transmission Date: 20141002
  Serious: Yes (Other)
  Sender: FDA-Public Use
  Company Number: US-GLAXOSMITHKLINE-A1052485A

PATIENT
  Age: 48 Year
  Sex: Female
  Weight: 100 kg

DRUGS (14)
  1. FLOVENT [Suspect]
     Indication: ASTHMA
     Dosage: 1PUFF TWICE PER DAY
     Route: 055
     Dates: start: 2000, end: 201310
  2. UNSPECIFIED MEDICATIONS [Suspect]
     Indication: MENTAL DISORDER
  3. HYDROCHLOROTHIAZIDE [Concomitant]
  4. FAMOTIDINE [Concomitant]
  5. GABAPENTIN [Concomitant]
  6. SERTRALINE [Concomitant]
  7. HYDROXINE [Concomitant]
  8. DIVALPROEX [Concomitant]
  9. MIRTAZAPINE [Concomitant]
  10. STEROID [Concomitant]
     Indication: ARTHROPATHY
  11. MIRTAZAPINE [Concomitant]
  12. RANITIDINE [Concomitant]
  13. HYDROXYZINE [Concomitant]
  14. PRO-AIR [Concomitant]

REACTIONS (14)
  - Myocardial infarction [Not Recovered/Not Resolved]
  - Chest discomfort [Not Recovered/Not Resolved]
  - Feeling abnormal [Not Recovered/Not Resolved]
  - Drug withdrawal syndrome [Not Recovered/Not Resolved]
  - Hypertension [Not Recovered/Not Resolved]
  - Drug administration error [Unknown]
  - Dyspnoea [Unknown]
  - Headache [Unknown]
  - Crying [Unknown]
  - Panic attack [Unknown]
  - Sleep disorder [Unknown]
  - Chills [Unknown]
  - Fatigue [Unknown]
  - Dizziness [Unknown]
